FAERS Safety Report 5847067-1 (Version None)
Quarter: 2008Q3

REPORT INFORMATION
  Report Type: 
  Country: None (occurrence: None)
  Receive Date: 20080815
  Receipt Date: 20080806
  Transmission Date: 20090109
  Serious: Yes (Hospitalization, Other)
  Sender: FDA-Public Use
  Company Number: PHEH2006US01239

PATIENT
  Sex: Female
  Weight: 69.841 kg

DRUGS (17)
  1. AREDIA [Suspect]
     Indication: METASTASES TO BONE
     Dosage: UNK,UNK
     Route: 042
     Dates: start: 19970101
  2. ZOMETA [Suspect]
     Indication: METASTASES TO BONE
     Dosage: 4 MG Q21DAYS
     Route: 042
     Dates: end: 20050120
  3. ZOMETA [Suspect]
     Dosage: 4 MG Q21 DAYS
     Route: 042
     Dates: start: 20050501, end: 20050627
  4. TAMOXIFEN CITRATE [Concomitant]
     Indication: BREAST CANCER
     Dosage: UNK
     Dates: start: 19970101, end: 20000101
  5. TAMOXIFEN CITRATE [Concomitant]
     Dosage: UNK
     Dates: start: 20050928
  6. MEGACE [Concomitant]
     Indication: BREAST CANCER
     Dosage: 40 MG, QD
     Dates: start: 20030101
  7. MEGACE [Concomitant]
     Dosage: 80 MG, QD
  8. ALLEGRA [Concomitant]
  9. ATACAND [Concomitant]
     Dosage: 160 MG, QD
  10. PREVACID [Concomitant]
     Dosage: 30 MG, QD
  11. ARIMIDEX [Concomitant]
     Dosage: UNK
     Dates: start: 20000101
  12. AROMASIN [Concomitant]
     Dosage: UNK
     Dates: start: 20011201, end: 20020901
  13. TAXOTERE [Concomitant]
     Indication: BREAST CANCER
     Dosage: UNK
     Dates: start: 20030201, end: 20030701
  14. XELODA [Concomitant]
     Indication: BREAST CANCER
     Dosage: 1000 MG, BID
     Dates: start: 20040901, end: 20050928
  15. FASLODEX [Concomitant]
     Dosage: UNK
     Dates: start: 20020901
  16. CALCIUM [Concomitant]
     Dosage: 1200 MG, QD
  17. DECADRON                                /CAN/ [Concomitant]

REACTIONS (27)
  - BACTERIAL INFECTION [None]
  - BIOPSY BONE ABNORMAL [None]
  - BONE DISORDER [None]
  - BONE FRAGMENTATION [None]
  - BONE SWELLING [None]
  - COUGH [None]
  - DENTAL CLEANING [None]
  - DISEASE PROGRESSION [None]
  - DYSPNOEA [None]
  - GINGIVITIS [None]
  - IMPAIRED HEALING [None]
  - LIVER FUNCTION TEST ABNORMAL [None]
  - MASS [None]
  - METASTASES TO LIVER [None]
  - MUSCULOSKELETAL CHEST PAIN [None]
  - MYALGIA [None]
  - NEUROPATHY PERIPHERAL [None]
  - ORAL SURGERY [None]
  - ORTHOPEDIC PROCEDURE [None]
  - OSTEONECROSIS [None]
  - PALPITATIONS [None]
  - PANCYTOPENIA [None]
  - PNEUMONIA [None]
  - TACHYARRHYTHMIA [None]
  - TOOTH DISORDER [None]
  - TOOTH EXTRACTION [None]
  - VIRAL LABYRINTHITIS [None]
